FAERS Safety Report 13627480 (Version 1)
Quarter: 2017Q2

REPORT INFORMATION
  Report Type: Spontaneous
  Country: US (occurrence: US)
  Receive Date: 20170531
  Receipt Date: 20170531
  Transmission Date: 20170830
  Serious: Yes (Other)
  Sender: FDA-Public Use
  Company Number: US-ASTELLAS-1503883

PATIENT
  Sex: Female

DRUGS (8)
  1. AMLODIPINE [Concomitant]
     Active Substance: AMLODIPINE BESYLATE
  2. IBUPROFEN. [Concomitant]
     Active Substance: IBUPROFEN
  3. LISINOPRIL. [Concomitant]
     Active Substance: LISINOPRIL
  4. TETRACYCLINE [Concomitant]
     Active Substance: TETRACYCLINE
  5. DOXYCYCLINE. [Concomitant]
     Active Substance: DOXYCYCLINE
  6. ATIVAN [Concomitant]
     Active Substance: LORAZEPAM
  7. TARCEVA [Suspect]
     Active Substance: ERLOTINIB HYDROCHLORIDE
     Indication: LUNG NEOPLASM MALIGNANT
     Route: 048
     Dates: start: 20141114
  8. SYMBICORT [Concomitant]
     Active Substance: BUDESONIDE\FORMOTEROL FUMARATE DIHYDRATE

REACTIONS (11)
  - Acne [Unknown]
  - Lung disorder [Unknown]
  - Diarrhoea [Unknown]
  - Alopecia [Unknown]
  - Nausea [Unknown]
  - Dyspepsia [Unknown]
  - Drug ineffective [Unknown]
  - Rash [Recovered/Resolved]
  - Aphthous ulcer [Unknown]
  - Acne pustular [Recovered/Resolved]
  - Hair growth abnormal [Unknown]
